FAERS Safety Report 14188861 (Version 1)
Quarter: 2017Q4

REPORT INFORMATION
  Report Type: Spontaneous
  Country: FR (occurrence: FR)
  Receive Date: 20171114
  Receipt Date: 20171114
  Transmission Date: 20180321
  Serious: Yes (Other)
  Sender: FDA-Public Use
  Company Number: FR-MERCK KGAA-2034079

PATIENT
  Age: 55 Year
  Sex: Female
  Weight: 80 kg

DRUGS (1)
  1. NOVOTHYROX [Suspect]
     Active Substance: LEVOTHYROXINE SODIUM
     Indication: THYROID DISORDER
     Route: 048
     Dates: start: 201705

REACTIONS (15)
  - Diffuse alopecia [Recovering/Resolving]
  - Nausea [Recovering/Resolving]
  - Constipation [Recovering/Resolving]
  - Abdominal distension [Recovering/Resolving]
  - Memory impairment [Recovering/Resolving]
  - Hypoaesthesia [Recovering/Resolving]
  - Vertigo [Recovering/Resolving]
  - Vision blurred [Recovering/Resolving]
  - Disturbance in attention [Recovering/Resolving]
  - Diarrhoea [Recovering/Resolving]
  - Hypoacusis [Recovering/Resolving]
  - Headache [Recovering/Resolving]
  - Blood thyroid stimulating hormone normal [Recovered/Resolved]
  - Fatigue [Recovering/Resolving]
  - Somnolence [Recovering/Resolving]
